FAERS Safety Report 11410034 (Version 1)
Quarter: 2015Q3

REPORT INFORMATION
  Report Type: Spontaneous
  Country: US (occurrence: None)
  Receive Date: 20150813
  Receipt Date: 20150813
  Transmission Date: 20151125
  Serious: Yes (Other)
  Sender: FDA-Public Use
  Company Number: N2014-012G

PATIENT
  Age: 12 Year
  Sex: Male
  Weight: 57.15 kg

DRUGS (4)
  1. POSITIVE SKIN TEST CONTROL - HISTAMINE [Suspect]
     Active Substance: HISTAMINE
     Indication: HYPERSENSITIVITY
     Dosage: DROP
  2. DIFFERIN [Concomitant]
     Active Substance: ADAPALENE
  3. VARIOUS, GREER LABS [Suspect]
     Active Substance: UNSPECIFIED INGREDIENT
     Indication: HYPERSENSITIVITY
     Dosage: UNKNOWN, ONCE, SCRATCH
     Dates: start: 20140806
  4. CLIOCIN [Concomitant]

REACTIONS (2)
  - Throat tightness [None]
  - Erythema [None]

NARRATIVE: CASE EVENT DATE: 20140806
